FAERS Safety Report 19879496 (Version 1)
Quarter: 2021Q3

REPORT INFORMATION
  Report Type: Spontaneous
  Country: US (occurrence: US)
  Receive Date: 20210924
  Receipt Date: 20210924
  Transmission Date: 20211014
  Serious: Yes (Hospitalization, Other)
  Sender: FDA-Public Use
  Company Number: None

PATIENT
  Age: 63 Year
  Sex: Female
  Weight: 41.4 kg

DRUGS (15)
  1. ACETAMINOPHEN 650MG [Concomitant]
     Dates: start: 20210909, end: 20210914
  2. ASPIRIN 81MG [Concomitant]
     Active Substance: ASPIRIN
     Dates: start: 20210911, end: 20210916
  3. CEFTRIAXONE 1G [Concomitant]
     Dates: start: 20210913, end: 20210914
  4. DOCUSATE 100MG [Concomitant]
     Active Substance: DOCUSATE
     Dates: start: 20210909, end: 20210916
  5. METOPROLOL TARTRATE 12.5MG [Concomitant]
     Dates: start: 20210909, end: 20210916
  6. MELATONIN 3MG [Concomitant]
     Dates: start: 20210914, end: 20210915
  7. FUROSEMIDE 20MG [Concomitant]
     Active Substance: FUROSEMIDE
     Dates: start: 20210915, end: 20210916
  8. LOSARTAN 50MG [Concomitant]
     Active Substance: LOSARTAN
     Dates: start: 20210910, end: 20210916
  9. MAGNESIUM OXIDE 400MG [Concomitant]
     Active Substance: MAGNESIUM OXIDE
     Dates: start: 20210909, end: 20210916
  10. NITROGLYCERINE 2% OINTMENT [Concomitant]
     Dates: start: 20210909, end: 20210914
  11. HEPARIN 25,000 UNITS/0.45% NACL IV [Concomitant]
     Dates: start: 20210909, end: 20210915
  12. NS 1000ML 75 ML/HR [Concomitant]
     Dates: start: 20210911, end: 20210914
  13. FERRLECIT [Suspect]
     Active Substance: SODIUM FERRIC GLUCONATE COMPLEX
     Indication: ANAEMIA
     Route: 041
     Dates: start: 20210914, end: 20210914
  14. ALBUTEROL?IPRATROPIUM [Concomitant]
     Active Substance: ALBUTEROL\IPRATROPIUM
     Dates: start: 20210909, end: 20210916
  15. ATORVASTATIN 80MG [Concomitant]
     Active Substance: ATORVASTATIN
     Dates: start: 20210909, end: 20210915

REACTIONS (2)
  - Hypotension [None]
  - Dyspnoea [None]

NARRATIVE: CASE EVENT DATE: 20210914
